FAERS Safety Report 6826559-2 (Version None)
Quarter: 2010Q3

REPORT INFORMATION
  Report Type: 
  Country: None (occurrence: None)
  Receive Date: 20100709
  Receipt Date: 20100630
  Transmission Date: 20110219
  Serious: Yes (Hospitalization)
  Sender: FDA-Public Use
  Company Number: US-AMGEN-KDL409711

PATIENT
  Sex: Female

DRUGS (3)
  1. ENBREL [Suspect]
     Indication: PSORIASIS
     Route: 058
     Dates: start: 20030501, end: 20061201
  2. DOVONEX [Concomitant]
  3. CLOBETASOL PROPIONATE [Concomitant]

REACTIONS (1)
  - RENAL CANCER [None]
